FAERS Safety Report 9301369 (Version 2)
Quarter: 2013Q1

REPORT INFORMATION
  Report Type: Spontaneous
  Country: US (occurrence: None)
  Receive Date: 20121231
  Receipt Date: 20130124
  Transmission Date: 20140127
  Serious: Yes (Other)
  Sender: FDA-Public Use
  Company Number: JPI-P-019565

PATIENT
  Age: 33 Year
  Sex: Male
  Weight: 88.45 kg

DRUGS (6)
  1. XYREM (500 MILLIGRAM/MILLILITERS, SOLUTION) (SODIUM OXYBATE) [Suspect]
     Dosage: (2.25 GM, 2 IN 1 D)
     Route: 048
     Dates: start: 20101201
  2. MODAFINIL [Concomitant]
  3. LANSOPRAZOLE [Concomitant]
  4. DIPHENHYDRAMINE [Concomitant]
  5. PEPTO BISMOL [Concomitant]
  6. COLESTIPOL [Concomitant]

REACTIONS (20)
  - Abdominal distension [None]
  - Hunger [None]
  - Abdominal pain upper [None]
  - Vomiting [None]
  - Diarrhoea [None]
  - Constipation [None]
  - Cholecystectomy [None]
  - Mood swings [None]
  - Insomnia [None]
  - Decreased appetite [None]
  - Hypophagia [None]
  - Hangover [None]
  - Weight increased [None]
  - Depression [None]
  - Agitation [None]
  - Anxiety [None]
  - Decreased interest [None]
  - Apathy [None]
  - Oesophageal mass [None]
  - Stomach mass [None]
